FAERS Safety Report 7132666-X (Version None)
Quarter: 2010Q4

REPORT INFORMATION
  Report Type: 
  Country: None (occurrence: None)
  Receive Date: 20101202
  Receipt Date: 20101124
  Transmission Date: 20110411
  Serious: Yes (Other)
  Sender: FDA-Public Use
  Company Number: US-JNJFOC-20101108503

PATIENT

DRUGS (10)
  1. DOXORUBICIN HYDROCHLORIDE [Suspect]
     Indication: METASTASES TO LIVER
     Dosage: 20-35 MG/M2 MIXED IN 100 CC 5 % DEXTROSE WATER OVER ONE HOUR ON ON DAY ONE.
     Route: 042
  2. DOXORUBICIN HYDROCHLORIDE [Suspect]
     Indication: NEOPLASM MALIGNANT
     Dosage: 20-35 MG/M2 MIXED IN 100 CC 5 % DEXTROSE WATER OVER ONE HOUR ON ON DAY ONE.
     Route: 042
  3. CISPLATIN [Suspect]
     Indication: METASTASES TO LIVER
     Dosage: 100-125 MG/M2 IN NORMAL SALINE 250 ML
     Route: 013
  4. CISPLATIN [Suspect]
     Indication: NEOPLASM MALIGNANT
     Dosage: 100-125 MG/M2 IN NORMAL SALINE 250 ML
     Route: 013
  5. HEPARIN [Suspect]
     Indication: METASTASES TO LIVER
     Dosage: DAY 1
     Route: 013
  6. HEPARIN [Suspect]
     Indication: NEOPLASM MALIGNANT
     Dosage: DAY 1
     Route: 013
  7. DEXAMETHASONE [Suspect]
     Indication: METASTASES TO LIVER
     Dosage: DAY 1 PRIOR TO CHEMOTHERAPY
     Route: 042
  8. DEXAMETHASONE [Suspect]
     Dosage: FOR 5 DAYS
     Route: 042
  9. DEXAMETHASONE [Suspect]
     Indication: NEOPLASM MALIGNANT
     Dosage: FOR 5 DAYS
     Route: 042
  10. DEXAMETHASONE [Suspect]
     Dosage: DAY 1 PRIOR TO CHEMOTHERAPY
     Route: 042

REACTIONS (1)
  - HYPOCALCAEMIA [None]
